FAERS Safety Report 15628251 (Version 5)
Quarter: 2019Q1

REPORT INFORMATION
  Report Type: Spontaneous
  Country: US (occurrence: US)
  Receive Date: 20181116
  Receipt Date: 20190321
  Transmission Date: 20190417
  Serious: No
  Sender: FDA-Public Use
  Company Number: US-PFIZER INC-2018469407

PATIENT
  Age: 54 Year
  Sex: Female

DRUGS (8)
  1. NEOSAR [Concomitant]
     Active Substance: CYCLOPHOSPHAMIDE
     Indication: CHEMOTHERAPY
     Dosage: UNK
  2. TAXOTERE [Concomitant]
     Active Substance: DOCETAXEL
     Indication: CHEMOTHERAPY
     Dosage: 170 MG, CYCLIC FOR 4 CYCLES
  3. TAXOTERE [Concomitant]
     Active Substance: DOCETAXEL
     Dosage: 150 MG, CYCLIC FOR 2 CYCLES
  4. TAMOXIFEN [Concomitant]
     Active Substance: TAMOXIFEN
     Indication: HORMONE THERAPY
     Dosage: UNK
     Dates: start: 201510
  5. DOCETAXEL. [Suspect]
     Active Substance: DOCETAXEL
     Indication: INTRADUCTAL PROLIFERATIVE BREAST LESION
     Dosage: 150 MG, CYCLIC (EVERY 3 WEEKS, 06 CYCLES)
     Dates: end: 20151106
  6. DOCETAXEL. [Suspect]
     Active Substance: DOCETAXEL
     Indication: BREAST CANCER FEMALE
     Dosage: 170 MG, CYCLIC (EVERY 3 WEEKS, 06 CYCLES)
     Dates: start: 20150724
  7. CYTOXAN [Concomitant]
     Active Substance: CYCLOPHOSPHAMIDE
     Indication: CHEMOTHERAPY
     Dosage: 1300 MG, CYCLIC FOR 4 CYCLES
  8. CYTOXAN [Concomitant]
     Active Substance: CYCLOPHOSPHAMIDE
     Dosage: 1000 MG, CYCLIC FOR 2 CYCLES

REACTIONS (5)
  - Hair disorder [Not Recovered/Not Resolved]
  - Hair texture abnormal [Not Recovered/Not Resolved]
  - Madarosis [Not Recovered/Not Resolved]
  - Alopecia [Not Recovered/Not Resolved]
  - Hair colour changes [Not Recovered/Not Resolved]

NARRATIVE: CASE EVENT DATE: 201508
